FAERS Safety Report 16440895 (Version 3)
Quarter: 2021Q4

REPORT INFORMATION
  Report Type: Spontaneous
  Country: US (occurrence: US)
  Receive Date: 20190617
  Receipt Date: 20211115
  Transmission Date: 20220303
  Serious: Yes (Other)
  Sender: FDA-Public Use
  Company Number: US-PFIZER INC-2019252398

PATIENT

DRUGS (1)
  1. BUPIVACAINE HYDROCHLORIDE\EPINEPHRINE [Suspect]
     Active Substance: BUPIVACAINE HYDROCHLORIDE\EPINEPHRINE
     Indication: Anaesthesia
     Dosage: UNK

REACTIONS (3)
  - Ventricular tachycardia [Unknown]
  - Circulatory collapse [Unknown]
  - Off label use [Unknown]
